FAERS Safety Report 11647783 (Version 1)
Quarter: 2015Q4

REPORT INFORMATION
  Report Type: Spontaneous
  Country: US (occurrence: None)
  Receive Date: 20151020
  Receipt Date: 20151020
  Transmission Date: 20160304
  Serious: Yes (Hospitalization)
  Sender: FDA-Public Use
  Company Number: None

PATIENT
  Age: 16 Year
  Sex: Male
  Weight: 146.3 kg

DRUGS (6)
  1. BLEOMYCIN [Suspect]
     Active Substance: BLEOMYCIN SULFATE
     Dates: end: 20150922
  2. DOXORUBICIN HYDROCHLORIDE. [Suspect]
     Active Substance: DOXORUBICIN HYDROCHLORIDE
     Dates: end: 20150917
  3. VINCRISTINE SULFATE. [Suspect]
     Active Substance: VINCRISTINE SULFATE
     Dates: end: 20150923
  4. ETOPOSIDE. [Suspect]
     Active Substance: ETOPOSIDE
     Dates: end: 20150918
  5. PREDNISONE. [Suspect]
     Active Substance: PREDNISONE
     Dates: end: 20150922
  6. CYCLOPHOSPHAMIDE. [Suspect]
     Active Substance: CYCLOPHOSPHAMIDE
     Dates: end: 20150917

REACTIONS (6)
  - Catheter site swelling [None]
  - Catheter site extravasation [None]
  - Catheter site pain [None]
  - Thrombosis [None]
  - Catheter site erythema [None]
  - Catheter site infection [None]

NARRATIVE: CASE EVENT DATE: 20151004
